FAERS Safety Report 15663250 (Version 1)
Quarter: 2018Q4

REPORT INFORMATION
  Report Type: Spontaneous
  Country: GB (occurrence: GB)
  Receive Date: 20181128
  Receipt Date: 20181128
  Transmission Date: 20190205
  Serious: Yes (Other)
  Sender: FDA-Public Use
  Company Number: GB-AUROBINDO-AUR-APL-2018-056686

PATIENT
  Age: 23 Year
  Sex: Female

DRUGS (2)
  1. LITHIUM. [Suspect]
     Active Substance: LITHIUM
     Indication: SCHIZOAFFECTIVE DISORDER
     Dosage: DOSAGE FORM: UNSPECIFIED
     Route: 065
  2. RISPERIDONE ORAL SOLUTION [Suspect]
     Active Substance: RISPERIDONE
     Indication: SCHIZOAFFECTIVE DISORDER
     Dosage: DOSAGE FORM: SOLUTION
     Route: 048

REACTIONS (2)
  - Blood prolactin increased [Recovering/Resolving]
  - Hair growth abnormal [Recovering/Resolving]
